FAERS Safety Report 9716949 (Version 1)
Quarter: 2013Q4

REPORT INFORMATION
  Report Type: Spontaneous
  Country: US (occurrence: None)
  Receive Date: 20131125
  Receipt Date: 20131125
  Transmission Date: 20140711
  Serious: Yes (Other)
  Sender: FDA-Public Use
  Company Number: 2013P1021074

PATIENT
  Age: 4 Year
  Sex: Male

DRUGS (2)
  1. MIDAZOLAM HCL [Suspect]
     Indication: IMMUNE SYSTEM DISORDER
  2. GAMMAGARD 50 MG/ML, POUDRE ET SOLVANT POUR SOLUTION POUR PERFUSION [Suspect]

REACTIONS (6)
  - Aggression [None]
  - Agitation [None]
  - Anger [None]
  - Screaming [None]
  - Drug effect decreased [None]
  - Malaise [None]
